FAERS Safety Report 15468232 (Version 1)
Quarter: 2018Q4

REPORT INFORMATION
  Report Type: Spontaneous
  Country: US (occurrence: US)
  Receive Date: 20181005
  Receipt Date: 20181005
  Transmission Date: 20190204
  Serious: No
  Sender: FDA-Public Use
  Company Number: US-BAYER-2018-185225

PATIENT
  Sex: Female

DRUGS (2)
  1. BENEFIBER [Suspect]
     Active Substance: STARCH, WHEAT
     Indication: GASTROINTESTINAL DISORDER
     Dosage: UNK
  2. MIRALAX [Suspect]
     Active Substance: POLYETHYLENE GLYCOL 3350
     Indication: GASTROINTESTINAL DISORDER
     Dosage: UNK
     Route: 065

REACTIONS (2)
  - Frequent bowel movements [Unknown]
  - Product prescribing issue [Unknown]
